FAERS Safety Report 13961535 (Version 2)
Quarter: 2017Q3

REPORT INFORMATION
  Report Type: Report from Study
  Country: NO (occurrence: NO)
  Receive Date: 20170912
  Receipt Date: 20170922
  Transmission Date: 20171128
  Serious: Yes (Life-Threatening)
  Sender: FDA-Public Use
  Company Number: NO-CELGENEUS-NOR-20170900091

PATIENT
  Sex: Male

DRUGS (11)
  1. CYTARABINE. [Suspect]
     Active Substance: CYTARABINE
     Indication: PRODUCT USED FOR UNKNOWN INDICATION
     Dosage: 400 MILLIGRAM
     Route: 065
     Dates: start: 20170710
  2. IDARUBICIN [Suspect]
     Active Substance: IDARUBICIN
     Indication: PRODUCT USED FOR UNKNOWN INDICATION
     Dosage: 24 MILLIGRAM
     Route: 065
     Dates: start: 20170710
  3. METHOTREXATE. [Suspect]
     Active Substance: METHOTREXATE
     Indication: PRODUCT USED FOR UNKNOWN INDICATION
     Route: 037
     Dates: start: 20170713, end: 20170713
  4. METHOTREXATE. [Suspect]
     Active Substance: METHOTREXATE
     Route: 037
     Dates: start: 20170711, end: 20170711
  5. METHOTREXATE. [Suspect]
     Active Substance: METHOTREXATE
     Route: 037
     Dates: start: 20170725, end: 20170725
  6. CYTARABINE. [Suspect]
     Active Substance: CYTARABINE
     Route: 039
     Dates: start: 20170713, end: 20170713
  7. REVLIMID [Suspect]
     Active Substance: LENALIDOMIDE
     Indication: PRODUCT USED FOR UNKNOWN INDICATION
     Dosage: 15 MILLIGRAM
     Route: 048
     Dates: start: 20170710, end: 20170718
  8. CYTARABINE. [Suspect]
     Active Substance: CYTARABINE
     Route: 037
     Dates: start: 20170711, end: 20170711
  9. CYTARABINE. [Suspect]
     Active Substance: CYTARABINE
     Route: 039
     Dates: start: 20170717, end: 20170717
  10. METHOTREXATE. [Suspect]
     Active Substance: METHOTREXATE
     Route: 039
     Dates: start: 20170717, end: 20170717
  11. METHOTREXATE. [Suspect]
     Active Substance: METHOTREXATE
     Route: 039
     Dates: start: 20170803, end: 20170803

REACTIONS (2)
  - Enterocolitis [Recovered/Resolved]
  - Sepsis [Recovered/Resolved]

NARRATIVE: CASE EVENT DATE: 20170719
